FAERS Safety Report 11623426 (Version 1)
Quarter: 2015Q4

REPORT INFORMATION
  Report Type: Spontaneous
  Country: US (occurrence: US)
  Receive Date: 20151013
  Receipt Date: 20151013
  Transmission Date: 20160304
  Serious: No
  Sender: FDA-Public Use
  Company Number: US-JNJFOC-20150504542

PATIENT
  Age: 68 Year
  Sex: Male
  Weight: 83.92 kg

DRUGS (2)
  1. TYLENOL EXTRA STRENGTH [Suspect]
     Active Substance: ACETAMINOPHEN
     Indication: PAIN
     Dosage: 1/2-1 CAPLET TWICE A DAY
     Route: 048
  2. TYLENOL EXTRA STRENGTH [Suspect]
     Active Substance: ACETAMINOPHEN
     Indication: ARTHRALGIA
     Dosage: 1/2-1 CAPLET TWICE A DAY
     Route: 048

REACTIONS (4)
  - Wrong technique in product usage process [Unknown]
  - Product packaging issue [Unknown]
  - Product closure removal difficult [Unknown]
  - Product package associated injury [Recovering/Resolving]
